FAERS Safety Report 9839580 (Version 1)
Quarter: 2014Q1

REPORT INFORMATION
  Report Type: Report from Study
  Country: US (occurrence: US)
  Receive Date: 20140124
  Receipt Date: 20140124
  Transmission Date: 20141002
  Serious: Yes (Other)
  Sender: FDA-Public Use
  Company Number: US-ROCHE-1338375

PATIENT
  Sex: Female

DRUGS (5)
  1. LUCENTIS [Suspect]
     Indication: AGE-RELATED MACULAR DEGENERATION
     Dosage: STARTED 6 YEARS AGO
     Route: 065
  2. LISINOPRIL [Concomitant]
  3. AMLODIPINE [Concomitant]
  4. FLOVENT [Concomitant]
  5. SEREVENT [Concomitant]
     Route: 065

REACTIONS (2)
  - Blindness [Unknown]
  - Retinal tear [Unknown]
